FAERS Safety Report 4584233-X (Version None)
Quarter: 2005Q1

REPORT INFORMATION
  Report Type: 
  Country: None (occurrence: None)
  Receive Date: 20050125
  Receipt Date: 20041027
  Transmission Date: 20050727
  Serious: No
  Sender: FDA-Public Use
  Company Number: USA041082441

PATIENT
  Age: 65 Year
  Sex: Female

DRUGS (1)
  1. FORTEO [Suspect]
     Indication: OSTEOPOROSIS
     Dates: start: 20031101, end: 20040501

REACTIONS (3)
  - NAIL DISORDER [None]
  - NAIL GROWTH CESSATION [None]
  - ONYCHORRHEXIS [None]
